FAERS Safety Report 7523536-3 (Version None)
Quarter: 2011Q2

REPORT INFORMATION
  Report Type: 
  Country: None (occurrence: None)
  Receive Date: 20110525
  Receipt Date: 20110510
  Transmission Date: 20111010
  Serious: Yes (Hospitalization)
  Sender: FDA-Public Use
  Company Number: 2011MA005769

PATIENT
  Age: 51 Year
  Sex: Female

DRUGS (1)
  1. MIRTAZAPINE [Suspect]
     Indication: INSOMNIA

REACTIONS (3)
  - RESTLESS LEGS SYNDROME [None]
  - SLEEP TERROR [None]
  - CONDITION AGGRAVATED [None]
